FAERS Safety Report 4359565-0 (Version None)
Quarter: 2004Q2

REPORT INFORMATION
  Report Type: 
  Country: None (occurrence: None)
  Receive Date: 20040512
  Receipt Date: 20040422
  Transmission Date: 20050107
  Serious: Yes (Other)
  Sender: FDA-Public Use
  Company Number: FR_040404001

PATIENT
  Age: 65 Year
  Sex: Male

DRUGS (2)
  1. XIGRIS (DROTRECOGIN ALFA(ACTIVATED) [Suspect]
     Dates: start: 20040421
  2. ASPEGIC 1000 [Concomitant]

REACTIONS (1)
  - TROPONIN INCREASED [None]
